FAERS Safety Report 16914839 (Version 2)
Quarter: 2019Q4

REPORT INFORMATION
  Report Type: Spontaneous
  Country: DE (occurrence: DE)
  Receive Date: 20191014
  Receipt Date: 20191104
  Transmission Date: 20200122
  Serious: Yes (Death, Other)
  Sender: FDA-Public Use
  Company Number: DE-009507513-1910DEU006836

PATIENT
  Age: 69 Year
  Sex: Male
  Weight: 82 kg

DRUGS (3)
  1. PEMETREXED DISODIUM [Interacting]
     Active Substance: PEMETREXED DISODIUM
     Indication: ADENOCARCINOMA OF COLON
     Dosage: 995.0 MG
     Route: 042
     Dates: start: 20190903, end: 20190903
  2. CARBOPLATIN. [Interacting]
     Active Substance: CARBOPLATIN
     Indication: ADENOCARCINOMA OF COLON
     Dosage: 442.6 MILLIGRAM
     Route: 042
     Dates: start: 20190903, end: 20190903
  3. PEMBROLIZUMAB. [Suspect]
     Active Substance: PEMBROLIZUMAB
     Indication: ADENOCARCINOMA OF COLON
     Dosage: 200 MILLIGRAM
     Route: 042
     Dates: start: 20190903, end: 20190903

REACTIONS (12)
  - Nausea [Unknown]
  - Dehydration [Unknown]
  - Neutropenia [Fatal]
  - Vomiting [Unknown]
  - Thrombocytopenia [Unknown]
  - Acinetobacter infection [Fatal]
  - Drug interaction [Unknown]
  - Leukopenia [Fatal]
  - Sepsis [Fatal]
  - Hypophagia [Unknown]
  - Acute kidney injury [Unknown]
  - Diarrhoea [Recovered/Resolved]

NARRATIVE: CASE EVENT DATE: 20190904
